FAERS Safety Report 9250400 (Version 1)
Quarter: 2013Q1

REPORT INFORMATION
  Report Type: Spontaneous
  Country: US (occurrence: None)
  Receive Date: 20130305
  Receipt Date: 20130305
  Transmission Date: 20140127
  Serious: Yes (Other)
  Sender: FDA-Public Use
  Company Number: 163-21880-12042866

PATIENT
  Sex: 0

DRUGS (7)
  1. REVLIMID [Suspect]
     Indication: PLASMA CELL MYELOMA
     Dosage: 25 MCI, DAILY X 21D/28D, PO
     Route: 048
     Dates: start: 200902, end: 200910
  2. DAPSONE (DAPSONE) [Concomitant]
  3. TRAZODONE (TRAZODONE) [Concomitant]
  4. BUPROPION (BUPROPION) [Concomitant]
  5. CLON AZEPAM (CLONAZEPAM) [Concomitant]
  6. AMPHENTAMINE (AMPHENTAMINE) [Concomitant]
  7. DEXTROAMPHETAMINE (DEXAMFETAMINE) [Concomitant]

REACTIONS (2)
  - Rectal haemorrhage [None]
  - Diarrhoea [None]
